FAERS Safety Report 8421400-9 (Version None)
Quarter: 2012Q2

REPORT INFORMATION
  Report Type: 
  Country: None (occurrence: None)
  Receive Date: 20120608
  Receipt Date: 20120605
  Transmission Date: 20120825
  Serious: Yes (Death, Hospitalization, Other)
  Sender: FDA-Public Use
  Company Number: PHHY2011DE41737

PATIENT
  Sex: Male

DRUGS (18)
  1. SYMBICORT [Concomitant]
     Indication: CHRONIC OBSTRUCTIVE PULMONARY DISEASE
     Dates: start: 20100210
  2. METFORMIN HCL [Concomitant]
     Indication: DIABETES MELLITUS
     Dosage: 1700 MG, QD
     Route: 048
     Dates: start: 20060906
  3. HMG COA REDUCTASE INHIBITORS (STATINS) [Concomitant]
  4. MIRTAZAPINE [Concomitant]
     Indication: DEPRESSION
     Dosage: 15 MG, QD
     Route: 048
     Dates: start: 20100329
  5. CALCIUM ANTAGONIST [Concomitant]
     Dosage: UNK UKN, UNK
  6. FUROSEMIDE [Concomitant]
     Indication: CARDIAC FAILURE
     Dosage: 250 MG, QD
     Route: 048
     Dates: start: 20081024
  7. DIURETICS [Concomitant]
     Dosage: UNK UKN, UNK
  8. AZUPROSTAT [Concomitant]
     Indication: BENIGN PROSTATIC HYPERPLASIA
     Dosage: 460 MG, QD
     Route: 048
     Dates: start: 20101021
  9. DIOVAN [Suspect]
     Indication: CARDIAC FAILURE
  10. ALLOPURINOL [Concomitant]
     Indication: HYPERURICAEMIA
     Dosage: 100 MG, QD
     Route: 048
     Dates: start: 20101206
  11. RASILEZ [Suspect]
     Indication: HYPERTENSION
     Dosage: 150 MG, QD
     Route: 048
     Dates: start: 20090409, end: 20100602
  12. ORAL ANTIDIABETICS [Concomitant]
     Indication: DIABETES MELLITUS
  13. SPIRIVA [Concomitant]
     Indication: CHRONIC OBSTRUCTIVE PULMONARY DISEASE
     Dosage: 18 UG, QD
     Dates: start: 20090720
  14. FUROSEMIDE [Concomitant]
     Indication: RENAL FAILURE
  15. MIRTAZAPINE [Concomitant]
     Indication: SLEEP DISORDER
  16. DIOVAN [Suspect]
     Indication: HYPERTENSION
     Dosage: 160 MG, QD
     Route: 048
     Dates: start: 20100602
  17. NSAID'S [Concomitant]
     Dosage: UNK UKN, UNK
  18. ISON [Concomitant]
     Indication: CORONARY ARTERY DISEASE
     Dosage: 120 MG, QD
     Route: 048
     Dates: start: 19950301

REACTIONS (11)
  - ELECTROCARDIOGRAM QRS COMPLEX PROLONGED [None]
  - VENTRICULAR FIBRILLATION [None]
  - CARDIOGENIC SHOCK [None]
  - TRANSIENT ISCHAEMIC ATTACK [None]
  - BRONCHIAL CARCINOMA [None]
  - OSTEOARTHRITIS [None]
  - OBESITY [None]
  - LUNG INFECTION [None]
  - BLOOD PRESSURE DECREASED [None]
  - ACUTE MYOCARDIAL INFARCTION [None]
  - DEMENTIA [None]
